FAERS Safety Report 13766488 (Version 1)
Quarter: 2017Q3

REPORT INFORMATION
  Report Type: Spontaneous
  Country: FR (occurrence: FR)
  Receive Date: 20170719
  Receipt Date: 20170719
  Transmission Date: 20171127
  Serious: Yes (Hospitalization)
  Sender: FDA-Public Use
  Company Number: FR-AMGEN-FRASP2017107872

PATIENT
  Age: 76 Year
  Sex: Female

DRUGS (12)
  1. METHOTREXATE SODIUM. [Suspect]
     Active Substance: METHOTREXATE SODIUM
     Indication: RHEUMATOID ARTHRITIS
     Dosage: 15 MG, WEEKLY
     Route: 048
     Dates: start: 201610, end: 20170518
  2. BISOPROLOL FUMARATE. [Concomitant]
     Active Substance: BISOPROLOL FUMARATE
     Indication: HYPERTENSION
     Dosage: 5 MG, 1X/DAY
     Route: 048
  3. RALOXIFENE. [Suspect]
     Active Substance: RALOXIFENE
     Indication: OSTEOPOROSIS
     Dosage: 60 MG, 1X/DAY
     Route: 048
     Dates: start: 201212, end: 20170519
  4. LERCANIDIPINE HYDROCHLORIDE [Concomitant]
     Active Substance: LERCANIDIPINE HYDROCHLORIDE
     Indication: HYPERTENSION
     Dosage: 20 MG, 1X/DAY
     Route: 048
  5. PARACETAMOL CODEINE [Concomitant]
     Active Substance: ACETAMINOPHEN\CODEINE PHOSPHATE
     Dosage: UNK, AS NEEDED
  6. ENBREL [Suspect]
     Active Substance: ETANERCEPT
     Indication: RHEUMATOID ARTHRITIS
     Dosage: 50 MG, CYCLIC: EVERY 15 DAYS
     Route: 058
     Dates: start: 201610, end: 20170518
  7. OROCAL [Concomitant]
     Active Substance: CALCIUM CARBONATE
     Dosage: 500 MG, 2X/DAY
  8. METHOTREXATE SODIUM. [Suspect]
     Active Substance: METHOTREXATE SODIUM
     Dosage: 15 MG, WEEKLY
     Route: 048
     Dates: start: 20170524
  9. CORTANCYL [Concomitant]
     Active Substance: PREDNISONE
     Indication: RHEUMATOID ARTHRITIS
     Dosage: 5 MG, 1X/DAY
     Route: 048
  10. ENBREL [Suspect]
     Active Substance: ETANERCEPT
     Dosage: 50 MG, CYCLIC: EVERY 15 DAYS
     Route: 058
     Dates: start: 20170524
  11. FOLIC ACID. [Concomitant]
     Active Substance: FOLIC ACID
     Indication: RHEUMATOID ARTHRITIS
     Dosage: 5 MG, WEEKLY: EVERY WEDNESDAY
     Route: 048
  12. LANSOPRAZOLE. [Concomitant]
     Active Substance: LANSOPRAZOLE
     Indication: GASTRIC ULCER
     Dosage: 15 MG, 1X/DAY
     Route: 048

REACTIONS (4)
  - Pulmonary embolism [Recovered/Resolved]
  - Deep vein thrombosis [Recovered/Resolved]
  - Meniscus injury [Unknown]
  - Eczema [Unknown]

NARRATIVE: CASE EVENT DATE: 20170519
